FAERS Safety Report 8102469-8 (Version None)
Quarter: 2012Q1

REPORT INFORMATION
  Report Type: 
  Country: None (occurrence: None)
  Receive Date: 20120201
  Receipt Date: 20120131
  Transmission Date: 20120608
  Serious: Yes (Life-Threatening)
  Sender: FDA-Public Use
  Company Number: IT-SANOFI-AVENTIS-2012SA003559

PATIENT
  Age: 74 Year
  Sex: Male

DRUGS (6)
  1. SIMVASTATIN [Suspect]
     Route: 048
     Dates: start: 20110208, end: 20110808
  2. REPAGLINIDE [Suspect]
     Route: 048
     Dates: start: 20110208, end: 20110808
  3. ESCITALOPRAM [Concomitant]
     Route: 065
  4. BENEXOL [Concomitant]
     Route: 065
  5. AMLODIPINE [Concomitant]
     Route: 065
  6. AMARYL [Suspect]
     Route: 048
     Dates: start: 20090101, end: 20110808

REACTIONS (6)
  - HYPOGLYCAEMIA [None]
  - RHABDOMYOLYSIS [None]
  - DISTURBANCE IN ATTENTION [None]
  - PSYCHOMOTOR HYPERACTIVITY [None]
  - CEREBRAL DISORDER [None]
  - CONFUSIONAL STATE [None]
